FAERS Safety Report 8607994 (Version 2)
Quarter: 2013Q2

REPORT INFORMATION
  Report Type: Spontaneous
  Country: US (occurrence: US)
  Receive Date: 20120611
  Receipt Date: 20130617
  Transmission Date: 20140414
  Serious: Yes (Hospitalization, Disabling)
  Sender: FDA-Public Use
  Company Number: US-ASTRAZENECA-2012SE34942

PATIENT
  Age: 58 Year
  Sex: 0

DRUGS (14)
  1. NEXIUM [Suspect]
     Indication: GASTROOESOPHAGEAL REFLUX DISEASE
     Route: 048
     Dates: start: 2006, end: 2012
  2. NEXIUM [Suspect]
     Indication: BARRETT^S OESOPHAGUS
     Route: 048
     Dates: start: 2006, end: 2012
  3. RANITIDINE [Concomitant]
     Indication: GASTROOESOPHAGEAL REFLUX DISEASE
     Dates: start: 2012
  4. GAVISCON [Concomitant]
  5. EXFORGE [Concomitant]
     Indication: BLOOD PRESSURE ABNORMAL
  6. FAMOTIDINE [Concomitant]
     Indication: GASTROOESOPHAGEAL REFLUX DISEASE
  7. NASONEX [Concomitant]
     Indication: SINUSITIS
  8. BONIVA [Concomitant]
     Indication: OSTEOPOROSIS
  9. VITAMIN D [Concomitant]
     Indication: OSTEOPOROSIS
  10. RECLAST [Concomitant]
     Indication: OSTEOPOROSIS
  11. CALCIUM [Concomitant]
  12. FINASTERIDE [Concomitant]
     Indication: FATIGUE
  13. SPIRIVA [Concomitant]
     Indication: CHRONIC OBSTRUCTIVE PULMONARY DISEASE
  14. BABY ASPIRIN [Concomitant]

REACTIONS (7)
  - Dyspnoea [Unknown]
  - Gastrooesophageal reflux disease [Unknown]
  - Osteoporosis [Unknown]
  - Back injury [Unknown]
  - Chronic obstructive pulmonary disease [Unknown]
  - Intervertebral disc protrusion [Unknown]
  - Multiple fractures [Unknown]
